FAERS Safety Report 8525013-X (Version None)
Quarter: 2012Q3

REPORT INFORMATION
  Report Type: 
  Country: None (occurrence: None)
  Receive Date: 20120720
  Receipt Date: 20120711
  Transmission Date: 20120928
  Serious: Yes (Hospitalization)
  Sender: FDA-Public Use
  Company Number: JP-BRISTOL-MYERS SQUIBB COMPANY-15821986

PATIENT
  Age: 86 Year
  Sex: Female

DRUGS (18)
  1. ORENCIA [Suspect]
     Dosage: 18NOV10 02DEC10 12JAN2011:500MG
     Route: 041
     Dates: start: 20101104
  2. BUCILLAMINE [Concomitant]
  3. CYTOTEC [Concomitant]
  4. VANCOMYCIN [Suspect]
     Indication: PNEUMONIA ASPIRATION
     Dates: start: 20110220
  5. ASCORBIC ACID [Concomitant]
  6. LAC-B [Concomitant]
  7. FORSENID [Concomitant]
  8. DIAINAMIX [Concomitant]
  9. DORIPENEM [Suspect]
     Indication: PNEUMONIA ASPIRATION
     Dates: start: 20110215
  10. ACETAMINOPHEN [Concomitant]
     Indication: RHEUMATOID ARTHRITIS
  11. RABEPRAZOLE SODIUM [Concomitant]
  12. FERROUS FUMARATE [Concomitant]
  13. ALENDRONATE SODIUM [Concomitant]
  14. FOLIAMIN [Concomitant]
  15. FLUCONAZOLE [Suspect]
     Indication: PNEUMONIA ASPIRATION
     Dates: start: 20110215
  16. RIZE [Concomitant]
  17. ISONIAZID [Concomitant]
  18. METHOTREXATE [Suspect]
     Dates: start: 20070225

REACTIONS (2)
  - PNEUMONIA ASPIRATION [None]
  - HEPATIC FUNCTION ABNORMAL [None]
